FAERS Safety Report 5531549-6 (Version None)
Quarter: 2007Q4

REPORT INFORMATION
  Report Type: 
  Country: None (occurrence: None)
  Receive Date: 20071128
  Receipt Date: 20071120
  Transmission Date: 20080405
  Serious: Yes (Death, Hospitalization)
  Sender: FDA-Public Use
  Company Number: 153-20785-07111342

PATIENT
  Age: 56 Year
  Sex: Male

DRUGS (4)
  1. THALIDOMIDE [Suspect]
     Indication: HEPATIC NEOPLASM MALIGNANT
     Dosage: ORAL
     Route: 048
  2. 5-FLUOROURACILE (FLUOROURACIL) [Concomitant]
  3. CISPLATIN [Concomitant]
  4. MITOXANTRONE [Concomitant]

REACTIONS (3)
  - MALIGNANT NEOPLASM PROGRESSION [None]
  - METASTASIS [None]
  - PERITONEAL HAEMORRHAGE [None]
